FAERS Safety Report 16904398 (Version 1)
Quarter: 2019Q4

REPORT INFORMATION
  Report Type: Spontaneous
  Country: TR (occurrence: TR)
  Receive Date: 20191010
  Receipt Date: 20191010
  Transmission Date: 20200122
  Serious: Yes (Other)
  Sender: FDA-Public Use
  Company Number: TR-JNJFOC-20191005478

PATIENT
  Age: 31 Year
  Sex: Male
  Weight: 77 kg

DRUGS (2)
  1. RIVAROXABAN [Suspect]
     Active Substance: RIVAROXABAN
     Indication: HEART VALVE INCOMPETENCE
     Dosage: 20 MG, UNK
     Route: 048
  2. RIVAROXABAN [Suspect]
     Active Substance: RIVAROXABAN
     Indication: ARRHYTHMIA

REACTIONS (3)
  - Gingival bleeding [Not Recovered/Not Resolved]
  - Haematuria [Not Recovered/Not Resolved]
  - Renal pain [Not Recovered/Not Resolved]

NARRATIVE: CASE EVENT DATE: 20190826
